FAERS Safety Report 8363824-4 (Version None)
Quarter: 2012Q2

REPORT INFORMATION
  Report Type: 
  Country: None (occurrence: None)
  Receive Date: 20120516
  Receipt Date: 20120507
  Transmission Date: 20120825
  Serious: Yes (Hospitalization)
  Sender: FDA-Public Use
  Company Number: FR-EISAI INC-E7389-01334-CLI-FR

PATIENT
  Sex: Female
  Weight: 70 kg

DRUGS (9)
  1. LEVOTHYROXINE SODIUM [Concomitant]
     Indication: HYPOTHYROIDISM
     Route: 048
  2. EPIRUBICIN HYDROCHLORIDE [Suspect]
     Indication: BREAST CANCER METASTATIC
     Route: 041
     Dates: start: 20110701
  3. ZOLPIDEM TARTRATE [Concomitant]
     Indication: ANXIETY
     Route: 048
     Dates: start: 20110601
  4. MORPHINE [Concomitant]
     Indication: ABDOMINAL PAIN
     Route: 048
     Dates: start: 20110701
  5. DUPHALAC [Concomitant]
     Indication: CONSTIPATION
     Route: 048
     Dates: start: 20110701
  6. ESCITALOPRAM [Concomitant]
     Indication: ANXIETY
     Route: 048
     Dates: start: 20110101
  7. LEXOMIL [Concomitant]
     Indication: ANXIETY
     Route: 048
     Dates: start: 20110701
  8. LYRICA [Concomitant]
     Route: 048
     Dates: start: 20110701
  9. EPIRUBICIN HYDROCHLORIDE [Suspect]
     Route: 041
     Dates: start: 20110527, end: 20110617

REACTIONS (1)
  - HYPERTHERMIA [None]
